FAERS Safety Report 7393633-4 (Version None)
Quarter: 2011Q2

REPORT INFORMATION
  Report Type: 
  Country: None (occurrence: None)
  Receive Date: 20110405
  Receipt Date: 20110331
  Transmission Date: 20111010
  Serious: No
  Sender: FDA-Public Use
  Company Number: US-PFIZER INC-2011071991

PATIENT
  Sex: Female
  Weight: 72.562 kg

DRUGS (11)
  1. AMLODIPINE BESYLATE [Suspect]
     Dosage: UNK
  2. CADUET [Suspect]
     Indication: HYPERTENSION
     Dosage: 5/20 MG, 1X/DAY
     Route: 048
     Dates: start: 20040101
  3. CADUET [Suspect]
     Indication: BLOOD CHOLESTEROL INCREASED
  4. SYNTHROID [Concomitant]
     Indication: THYROID DISORDER
     Dosage: 5 MG, UNK
  5. BENICAR [Concomitant]
     Indication: HYPERTENSION
  6. ACETYLSALICYLIC ACID [Concomitant]
     Indication: HYPERTENSION
     Dosage: UNK
  7. LIPITOR [Suspect]
     Indication: BLOOD CHOLESTEROL INCREASED
     Dosage: 20 MG, 1X/DAY
     Route: 048
     Dates: start: 20110201
  8. BENICAR [Concomitant]
     Indication: CARDIAC DISORDER
     Dosage: UNK
  9. LIPITOR [Suspect]
     Dosage: 20 MG, UNK
  10. ACETYLSALICYLIC ACID [Concomitant]
     Indication: CARDIAC DISORDER
  11. HYDROCHLOROTHIAZIDE [Concomitant]
     Indication: HYPERTENSION
     Dosage: UNK

REACTIONS (4)
  - MUSCULAR WEAKNESS [None]
  - MUSCLE SPASMS [None]
  - VITAMIN D DEFICIENCY [None]
  - MALAISE [None]
